FAERS Safety Report 8482455-9 (Version None)
Quarter: 2012Q3

REPORT INFORMATION
  Report Type: 
  Country: None (occurrence: None)
  Receive Date: 20120702
  Receipt Date: 20120627
  Transmission Date: 20120928
  Serious: Yes (Other)
  Sender: FDA-Public Use
  Company Number: GB-GLAXOSMITHKLINE-B0810865A

PATIENT
  Age: 46 Year
  Sex: Female
  Weight: 61 kg

DRUGS (3)
  1. REQUIP XL [Suspect]
     Indication: PARKINSON'S DISEASE
     Dosage: 8MG PER DAY
     Dates: start: 20120222
  2. IBUPROFEN [Concomitant]
     Indication: PAIN
  3. REQUIP XL [Suspect]
     Dates: start: 20120608

REACTIONS (2)
  - OBSESSIVE-COMPULSIVE DISORDER [None]
  - ALCOHOL ABUSE [None]
